FAERS Safety Report 25343074 (Version 1)
Quarter: 2025Q2

REPORT INFORMATION
  Report Type: Report from Study
  Country: US (occurrence: US)
  Receive Date: 20250521
  Receipt Date: 20250521
  Transmission Date: 20250717
  Serious: Yes (Other)
  Sender: MALLINCKRODT
  Company Number: US-MALLINCKRODT-MNK202501210

PATIENT
  Sex: Female

DRUGS (2)
  1. CORTICOTROPIN [Suspect]
     Active Substance: CORTICOTROPIN
     Indication: Sarcoidosis
  2. MUPIROCIN [Concomitant]
     Active Substance: MUPIROCIN

REACTIONS (16)
  - Pneumonia [Unknown]
  - Hypothyroidism [Recovering/Resolving]
  - White blood cell count increased [Recovering/Resolving]
  - Lymphocyte count decreased [Recovering/Resolving]
  - Immature granulocyte count increased [Recovering/Resolving]
  - Blood chloride increased [Recovering/Resolving]
  - Protein total decreased [Recovering/Resolving]
  - Type V hyperlipidaemia [Recovering/Resolving]
  - Memory impairment [Unknown]
  - Stress [Unknown]
  - Immunoglobulins abnormal [Unknown]
  - Full blood count abnormal [Unknown]
  - Neutrophil count increased [Unknown]
  - Glucose tolerance impaired [Recovering/Resolving]
  - Depression [Recovering/Resolving]
  - Asthenia [Unknown]
